FAERS Safety Report 18715316 (Version 2)
Quarter: 2021Q1

REPORT INFORMATION
  Report Type: Spontaneous
  Country: CZ (occurrence: CZ)
  Receive Date: 20210108
  Receipt Date: 20210113
  Transmission Date: 20210419
  Serious: Yes (Other)
  Sender: FDA-Public Use
  Company Number: CZ-ROCHE-2745616

PATIENT
  Age: 79 Year
  Sex: Male

DRUGS (13)
  1. TORVACARD [Concomitant]
     Active Substance: ATORVASTATIN CALCIUM
  2. CONCOR [Concomitant]
     Active Substance: BISOPROLOL FUMARATE
  3. RITUXIMAB. [Concomitant]
     Active Substance: RITUXIMAB
     Route: 065
  4. ACETYLSALICYLIC ACID [Concomitant]
     Active Substance: ASPIRIN
  5. FURON [Concomitant]
     Active Substance: FUROSEMIDE
  6. HELICID [Concomitant]
     Active Substance: OMEPRAZOLE
  7. FEIBA [Concomitant]
     Active Substance: ANTI-INHIBITOR COAGULANT COMPLEX
  8. HEMLIBRA [Suspect]
     Active Substance: EMICIZUMAB-KXWH
     Indication: FACTOR VIII DEFICIENCY
     Dosage: (CLASSICAL DOSE: ONCE A WEEK) CURRENTLY TWICE 60 MG TO ABOUT 82 KG ONCE A WEEK WEEK
     Route: 065
     Dates: start: 202008
  9. VIGANTOL [Concomitant]
  10. GODASAL [Concomitant]
     Active Substance: ASPIRIN\GLYCINE
  11. ZEFFIX [Concomitant]
     Active Substance: LAMIVUDINE
  12. FANHDI [Concomitant]
     Active Substance: ANTIHEMOPHILIC FACTOR HUMAN
  13. CYCLOPHOSPHAMIDE. [Concomitant]
     Active Substance: CYCLOPHOSPHAMIDE

REACTIONS (2)
  - Cardiac failure [Unknown]
  - Atrial fibrillation [Unknown]

NARRATIVE: CASE EVENT DATE: 20201211
